FAERS Safety Report 5089076-9 (Version None)
Quarter: 2006Q3

REPORT INFORMATION
  Report Type: 
  Country: None (occurrence: None)
  Receive Date: 20060822
  Receipt Date: 20060803
  Transmission Date: 20061208
  Serious: Yes (Other)
  Sender: FDA-Public Use
  Company Number: DE200608001397

PATIENT
  Age: 67 Year
  Sex: Female
  Weight: 54 kg

DRUGS (4)
  1. FORTEO [Suspect]
     Indication: OSTEOPOROSIS POSTMENOPAUSAL
     Dosage: DAILY (1/D), SUBCUTANEOUS
     Route: 058
     Dates: start: 20051128
  2. FORTEO [Concomitant]
  3. SINVASTATIN (SIMVASTATIN) [Concomitant]
  4. SILYMARIN (SILYMARIN) [Concomitant]

REACTIONS (1)
  - CHRONIC LYMPHOCYTIC LEUKAEMIA [None]
